FAERS Safety Report 9380397 (Version 1)
Quarter: 2013Q2

REPORT INFORMATION
  Report Type: Spontaneous
  Country: US (occurrence: None)
  Receive Date: 20130628
  Receipt Date: 20130628
  Transmission Date: 20140414
  Serious: Yes (Death, Other)
  Sender: FDA-Public Use
  Company Number: 201306000183

PATIENT
  Sex: Male
  Weight: .3 kg

DRUGS (1)
  1. INOMAX [Suspect]
     Dosage: 20 PPM, CONTINUOUS, INHALATION
     Route: 055
     Dates: start: 20130613, end: 20130615

REACTIONS (5)
  - Cardiac arrest [None]
  - Bradycardia [None]
  - Drug ineffective for unapproved indication [None]
  - Device issue [None]
  - Cardio-respiratory arrest [None]
